FAERS Safety Report 6985749-9 (Version None)
Quarter: 2010Q3

REPORT INFORMATION
  Report Type: 
  Country: None (occurrence: None)
  Receive Date: 20100913
  Receipt Date: 20100902
  Transmission Date: 20110219
  Serious: Yes (Other)
  Sender: FDA-Public Use
  Company Number: 2010US003546

PATIENT
  Age: 58 Year
  Sex: Female
  Weight: 95 kg

DRUGS (15)
  1. PROGRAF [Suspect]
     Indication: RENAL TRANSPLANT
     Dosage: 1 DF, UID/QD, ORAL
     Route: 048
     Dates: start: 20080328
  2. AMLODIPINE [Concomitant]
  3. K2, VITAMIN D (COLECALCIFEROL) TABLET [Concomitant]
  4. VITAMIN A (RETINOL) TABLET [Concomitant]
  5. VITAMIN E (TOCOPHEROL) TABLET [Concomitant]
  6. ASPIRIN [Concomitant]
  7. FISH OIL (FISH OIL) TABLET [Concomitant]
  8. METOPROLOL SUCCINATE [Concomitant]
  9. PREDNISONE [Concomitant]
  10. LYRICA (PREGABALIN) TABLET [Concomitant]
  11. BACTRIM [Concomitant]
  12. PANTOPRAZOLE SODIUM [Concomitant]
  13. SIMVASTATIN [Concomitant]
  14. HUMALOG [Concomitant]
  15. LANTUS [Concomitant]

REACTIONS (2)
  - ANKLE FRACTURE [None]
  - FOOT FRACTURE [None]
